FAERS Safety Report 4935113-9 (Version None)
Quarter: 2006Q1

REPORT INFORMATION
  Report Type: 
  Country: None (occurrence: None)
  Receive Date: 20060302
  Receipt Date: 20060217
  Transmission Date: 20060701
  Serious: Yes (Hospitalization, Disabling, Other)
  Sender: FDA-Public Use
  Company Number: 2006026823

PATIENT
  Age: 54 Year
  Sex: Male
  Weight: 90.7194 kg

DRUGS (4)
  1. VIAGRA [Suspect]
     Indication: ERECTILE DYSFUNCTION
     Dosage: 100 MG (100 MG, AS NECESSARY)
  2. CIALIS [Suspect]
     Indication: ERECTILE DYSFUNCTION
     Dates: start: 20030101
  3. LEVITRA [Concomitant]
  4. MIDRIN (DICHLORALPHENAZONE, ISOMETHEPTENE, PARACETAMOL) [Concomitant]

REACTIONS (11)
  - ACCIDENT [None]
  - BACK DISORDER [None]
  - CARDIOMYOPATHY [None]
  - DRUG EFFECT DECREASED [None]
  - DRUG INEFFECTIVE [None]
  - HEAD INJURY [None]
  - HERNIA REPAIR [None]
  - HIGH DENSITY LIPOPROTEIN DECREASED [None]
  - IMPAIRED WORK ABILITY [None]
  - MYOCARDIAL INFARCTION [None]
  - POST-TRAUMATIC STRESS DISORDER [None]
